FAERS Safety Report 13858726 (Version 2)
Quarter: 2017Q3

REPORT INFORMATION
  Report Type: Spontaneous
  Country: DE (occurrence: DE)
  Receive Date: 20170811
  Receipt Date: 20170829
  Transmission Date: 20171127
  Serious: Yes (Other)
  Sender: FDA-Public Use
  Company Number: DE-MALLINCKRODT-T201703334

PATIENT
  Sex: Male

DRUGS (1)
  1. HYDROMORPHONE HYDROCHLORIDE. [Suspect]
     Active Substance: HYDROMORPHONE HYDROCHLORIDE
     Indication: PRODUCT USED FOR UNKNOWN INDICATION
     Dosage: 16 MG PLUS 4 MG
     Route: 048
     Dates: start: 20170602, end: 20170620

REACTIONS (4)
  - Withdrawal syndrome [Unknown]
  - Abdominal discomfort [Unknown]
  - Dizziness [Unknown]
  - Nausea [Unknown]
